FAERS Safety Report 8067167-8 (Version None)
Quarter: 2012Q1

REPORT INFORMATION
  Report Type: 
  Country: None (occurrence: None)
  Receive Date: 20120124
  Receipt Date: 20120120
  Transmission Date: 20120608
  Serious: Yes (Hospitalization)
  Sender: FDA-Public Use
  Company Number: US-GLAXOSMITHKLINE-A0898796A

PATIENT
  Age: 62 Year
  Sex: Male

DRUGS (1)
  1. AVANDIA [Suspect]
     Indication: DIABETES MELLITUS
     Dosage: 4MG PER DAY
     Route: 048
     Dates: start: 20030328, end: 20080601

REACTIONS (8)
  - SYNCOPE [None]
  - OEDEMA [None]
  - PLEURAL EFFUSION [None]
  - SICK SINUS SYNDROME [None]
  - CARDIOMEGALY [None]
  - ATRIOVENTRICULAR BLOCK SECOND DEGREE [None]
  - CARDIOMYOPATHY [None]
  - CARDIAC FAILURE CONGESTIVE [None]
